FAERS Safety Report 4848191-2 (Version None)
Quarter: 2005Q4

REPORT INFORMATION
  Report Type: 
  Country: None (occurrence: None)
  Receive Date: 20051208
  Receipt Date: 20051129
  Transmission Date: 20060501
  Serious: Yes (Other)
  Sender: FDA-Public Use
  Company Number: JP-BRISTOL-MYERS SQUIBB COMPANY-13204904

PATIENT
  Age: 38 Year
  Sex: Female

DRUGS (2)
  1. GATIFLOXACIN [Suspect]
     Indication: ACUTE SINUSITIS
     Route: 048
     Dates: start: 20051129, end: 20051129
  2. GATIFLOXACIN [Suspect]
     Indication: OTITIS MEDIA ACUTE
     Route: 048
     Dates: start: 20051129, end: 20051129

REACTIONS (2)
  - DYSPHONIA [None]
  - FACE OEDEMA [None]
